FAERS Safety Report 21651739 (Version 10)
Quarter: 2023Q1

REPORT INFORMATION
  Report Type: Report from Study
  Country: KR (occurrence: None)
  Receive Date: 20221128
  Receipt Date: 20230324
  Transmission Date: 20230417
  Serious: Yes (Hospitalization)
  Sender: FDA-Public Use
  Company Number: KR-ROCHE-3221685

PATIENT
  Age: 70 Year
  Sex: Male
  Weight: 67.25 kg

DRUGS (15)
  1. TIRAGOLUMAB [Suspect]
     Active Substance: TIRAGOLUMAB
     Indication: Colorectal cancer metastatic
     Dosage: 20/OCT/2022 10:19 AM, START DATE OF MOST RECENT DOSE OF MTIG7192A CO-INFUSION (840 MG) PRIOR TO AE?2
     Route: 042
     Dates: start: 20211216
  2. ATEZOLIZUMAB [Suspect]
     Active Substance: ATEZOLIZUMAB
     Indication: Colorectal cancer metastatic
     Dosage: 20/OCT/2022 10:19 AM, START DATE OF MOST RECENT DOSE OF ATEZOLIZUMAB CO-INFUSION (1680 MG) PRIOR TO
     Route: 041
     Dates: start: 20211216
  3. ACETAMINOPHEN [Concomitant]
     Active Substance: ACETAMINOPHEN
     Route: 048
     Dates: start: 20221123
  4. SYNACTHENE [Concomitant]
     Route: 042
     Dates: start: 20221122, end: 20221122
  5. WINUF [Concomitant]
     Route: 042
     Dates: start: 20221123, end: 20221123
  6. PERIOLIMEL N4E [Concomitant]
     Route: 042
     Dates: start: 20221124, end: 20221124
  7. VITAMINS [Concomitant]
     Active Substance: VITAMINS
     Route: 042
     Dates: start: 20221124, end: 20221124
  8. FURTMAN [Concomitant]
     Route: 042
     Dates: start: 20221124, end: 20221124
  9. LACTICARE-HC [Concomitant]
     Indication: Rash
     Route: 061
     Dates: start: 20221228
  10. LACTICARE-HC [Concomitant]
     Indication: Pruritus
  11. ITOPRA [Concomitant]
     Route: 048
     Dates: start: 20230118, end: 20230119
  12. MOSAPRIDE CITRATE [Concomitant]
     Active Substance: MOSAPRIDE CITRATE
     Indication: Vomiting
     Route: 048
     Dates: start: 20230118, end: 20230119
  13. FAMOCID [Concomitant]
     Route: 048
     Dates: start: 20230118, end: 20230119
  14. ITOMED [ITOPRIDE HYDROCHLORIDE] [Concomitant]
     Route: 048
     Dates: start: 20230126, end: 20230201
  15. MEGACE [Concomitant]
     Active Substance: MEGESTROL ACETATE
     Indication: Decreased appetite
     Route: 048
     Dates: start: 20230202

REACTIONS (3)
  - Hypothyroidism [Not Recovered/Not Resolved]
  - Aspartate aminotransferase increased [Recovered/Resolved]
  - Diarrhoea [Recovered/Resolved]

NARRATIVE: CASE EVENT DATE: 20220602
